FAERS Safety Report 22231547 (Version 5)
Quarter: 2024Q2

REPORT INFORMATION
  Report Type: Spontaneous
  Country: US (occurrence: US)
  Receive Date: 20230420
  Receipt Date: 20240429
  Transmission Date: 20240715
  Serious: No
  Sender: FDA-Public Use
  Company Number: US-BIOGEN-2023BI01190269

PATIENT
  Sex: Female

DRUGS (1)
  1. TYSABRI [Suspect]
     Active Substance: NATALIZUMAB
     Indication: Multiple sclerosis
     Dosage: 300 MG/15ML
     Route: 050
     Dates: start: 20120120

REACTIONS (5)
  - Illness [Unknown]
  - COVID-19 [Unknown]
  - Rotator cuff syndrome [Unknown]
  - Fatigue [Unknown]
  - Influenza [Unknown]
